FAERS Safety Report 7389349-0 (Version None)
Quarter: 2011Q2

REPORT INFORMATION
  Report Type: 
  Country: None (occurrence: None)
  Receive Date: 20110401
  Receipt Date: 20110330
  Transmission Date: 20111010
  Serious: Yes (Hospitalization, Other)
  Sender: FDA-Public Use
  Company Number: B0546470B

PATIENT
  Sex: Female
  Weight: 40 kg

DRUGS (3)
  1. PREDNISONE [Suspect]
     Indication: MULTIPLE MYELOMA
     Route: 065
     Dates: start: 20080825, end: 20080828
  2. MELPHALAN [Suspect]
     Indication: MULTIPLE MYELOMA
     Route: 065
     Dates: start: 20080825, end: 20080828
  3. LENALIDOMIDE [Suspect]
     Indication: MULTIPLE MYELOMA
     Route: 048
     Dates: start: 20080825, end: 20080908

REACTIONS (6)
  - PYREXIA [None]
  - FATIGUE [None]
  - RESPIRATORY TRACT INFECTION [None]
  - FEBRILE NEUTROPENIA [None]
  - DECREASED APPETITE [None]
  - HYPOXIA [None]
